FAERS Safety Report 13006996 (Version 1)
Quarter: 2016Q4

REPORT INFORMATION
  Report Type: Spontaneous
  Country: US (occurrence: US)
  Receive Date: 20161207
  Receipt Date: 20161207
  Transmission Date: 20170207
  Serious: No
  Sender: FDA-Public Use
  Company Number: US-MIKART, INC.-1060535

PATIENT
  Age: 55 Year
  Sex: Female

DRUGS (6)
  1. FLONASE [Concomitant]
     Active Substance: FLUTICASONE PROPIONATE
  2. OMEPRAZOLE. [Concomitant]
     Active Substance: OMEPRAZOLE
  3. MELATONIN [Concomitant]
     Active Substance: MELATONIN
  4. CHLORZOXAZONE. [Suspect]
     Active Substance: CHLORZOXAZONE
     Indication: ARTHRALGIA
     Route: 048
  5. LORAZEPAM. [Concomitant]
     Active Substance: LORAZEPAM
  6. SULINDAC. [Concomitant]
     Active Substance: SULINDAC

REACTIONS (2)
  - Drug ineffective [Unknown]
  - Depression [Unknown]
